FAERS Safety Report 24267399 (Version 1)
Quarter: 2024Q3

REPORT INFORMATION
  Report Type: Spontaneous
  Country: FR (occurrence: FR)
  Receive Date: 20240830
  Receipt Date: 20240830
  Transmission Date: 20241016
  Serious: Yes (Hospitalization, Other)
  Sender: AUROBINDO
  Company Number: FR-AFSSAPS-LM2024000470

PATIENT
  Age: 68 Year
  Sex: Male
  Weight: 59.7 kg

DRUGS (16)
  1. CARBOPLATIN [Suspect]
     Active Substance: CARBOPLATIN
     Indication: Lung adenocarcinoma
     Dosage: 513 MILLIGRAM, 1 TOTAL
     Route: 042
     Dates: start: 20240625, end: 20240625
  2. CARBOPLATIN [Suspect]
     Active Substance: CARBOPLATIN
     Dosage: 884 MILLIGRAM,1 TOTAL
     Route: 042
     Dates: start: 20240402, end: 20240402
  3. CARBOPLATIN [Suspect]
     Active Substance: CARBOPLATIN
     Dosage: 611 MILLIGRAM
     Route: 042
     Dates: start: 20240604, end: 20240604
  4. CARBOPLATIN [Suspect]
     Active Substance: CARBOPLATIN
     Dosage: 744 MILLIGRAM
     Route: 042
     Dates: start: 20240515, end: 20240515
  5. CARBOPLATIN [Suspect]
     Active Substance: CARBOPLATIN
     Dosage: 832 MILLIGRAM
     Route: 042
     Dates: start: 20240423, end: 20240423
  6. PEMETREXED [Suspect]
     Active Substance: PEMETREXED
     Indication: Lung adenocarcinoma
     Dosage: 100 MILLIGRAM
     Route: 042
     Dates: start: 20240515, end: 20240515
  7. PEMETREXED [Suspect]
     Active Substance: PEMETREXED
     Dosage: 100 MILLIGRAM
     Route: 042
     Dates: start: 20240423, end: 20240423
  8. PEMETREXED [Suspect]
     Active Substance: PEMETREXED
     Dosage: 842 MILLIGRAM
     Route: 042
     Dates: start: 20240625, end: 20240625
  9. PEMETREXED [Suspect]
     Active Substance: PEMETREXED
     Dosage: 842 MILLIGRAM
     Route: 042
     Dates: start: 20240604, end: 20240604
  10. PEMETREXED [Suspect]
     Active Substance: PEMETREXED
     Dosage: 100 MILLIGRAM
     Route: 042
     Dates: start: 20240402, end: 20240402
  11. KEYTRUDA [Suspect]
     Active Substance: PEMBROLIZUMAB
     Indication: Lung adenocarcinoma
     Dosage: 200 MILLIGRAM, CYCLICAL
     Route: 042
     Dates: start: 20240402, end: 20240625
  12. EMEND [Concomitant]
     Active Substance: APREPITANT
     Indication: Product used for unknown indication
     Dosage: UNK
     Route: 065
  13. ONDANSETRON [Concomitant]
     Active Substance: ONDANSETRON
     Indication: Product used for unknown indication
     Dosage: UNK
     Route: 065
  14. SOLU-MEDROL [Concomitant]
     Active Substance: METHYLPREDNISOLONE SODIUM SUCCINATE
     Indication: Product used for unknown indication
     Dosage: UNK
     Route: 065
  15. LEVOTHYROXINE [Concomitant]
     Active Substance: LEVOTHYROXINE\LEVOTHYROXINE SODIUM
     Indication: Product used for unknown indication
     Dosage: UNK
     Route: 065
  16. ALLOPURINOL [Concomitant]
     Active Substance: ALLOPURINOL
     Indication: Product used for unknown indication
     Dosage: UNK
     Route: 065

REACTIONS (1)
  - Meningitis aseptic [Recovered/Resolved]

NARRATIVE: CASE EVENT DATE: 20240728
